FAERS Safety Report 6210956-2 (Version None)
Quarter: 2009Q2

REPORT INFORMATION
  Report Type: 
  Country: None (occurrence: None)
  Receive Date: 20090528
  Receipt Date: 20090528
  Transmission Date: 20091009
  Serious: Yes (Other)
  Sender: FDA-Public Use
  Company Number: None

PATIENT
  Sex: Female
  Weight: 56.6996 kg

DRUGS (1)
  1. LORAZEPAM [Suspect]
     Indication: ANXIETY
     Dosage: 1 TAB TID PO
     Route: 048
     Dates: start: 20090525, end: 20090527

REACTIONS (6)
  - ABDOMINAL PAIN [None]
  - ANXIETY [None]
  - DIARRHOEA [None]
  - PALPITATIONS [None]
  - PRODUCT SUBSTITUTION ISSUE [None]
  - REBOUND EFFECT [None]
